FAERS Safety Report 24082062 (Version 1)
Quarter: 2024Q3

REPORT INFORMATION
  Report Type: Report from Study
  Country: AU (occurrence: AU)
  Receive Date: 20240712
  Receipt Date: 20240712
  Transmission Date: 20241017
  Serious: Yes (Other)
  Sender: ROCHE
  Company Number: AU-ROCHE-10000021522

PATIENT
  Age: 37 Year
  Sex: Female

DRUGS (11)
  1. OCREVUS [Suspect]
     Active Substance: OCRELIZUMAB
     Indication: Relapsing-remitting multiple sclerosis
     Dosage: LAST OCREVUS INFUSION PATIENT REPORTS WAS 7-MAY-024.
     Route: 042
  2. TYSABRI [Concomitant]
     Active Substance: NATALIZUMAB
  3. LORATADINE [Concomitant]
     Active Substance: LORATADINE
  4. PANADOL [Concomitant]
     Active Substance: ACETAMINOPHEN
  5. CHOLECALCIFEROL [Concomitant]
     Active Substance: CHOLECALCIFEROL
     Dosage: 2 TABLETS DAILY
     Route: 048
  6. AMITRIPTYLINE HYDROCHLORIDE [Concomitant]
     Active Substance: AMITRIPTYLINE HYDROCHLORIDE
     Dosage: 50 MG DOSE: 1 TABLET NOCTE
     Route: 048
  7. PREGABALIN [Concomitant]
     Active Substance: PREGABALIN
     Route: 048
  8. PREGABALIN [Concomitant]
     Active Substance: PREGABALIN
     Route: 048
  9. GABAPENTIN [Concomitant]
     Active Substance: GABAPENTIN
     Dosage: COATED TABLET DOSE: 2 TABLETS DAILY
  10. CARBAMAZEPINE [Concomitant]
     Active Substance: CARBAMAZEPINE
  11. ROSUVASTATIN [Concomitant]
     Active Substance: ROSUVASTATIN
     Route: 048

REACTIONS (5)
  - Knee arthroplasty [Unknown]
  - Gastric banding [Unknown]
  - Hypercholesterolaemia [Unknown]
  - Neuralgia [Unknown]
  - Weight decreased [Unknown]

NARRATIVE: CASE EVENT DATE: 20230101
